FAERS Safety Report 7377603-8 (Version None)
Quarter: 2011Q1

REPORT INFORMATION
  Report Type: 
  Country: None (occurrence: None)
  Receive Date: 20110328
  Receipt Date: 20110317
  Transmission Date: 20110831
  Serious: Yes (Hospitalization, Other)
  Sender: FDA-Public Use
  Company Number: FR-BRISTOL-MYERS SQUIBB COMPANY-15633167

PATIENT
  Age: 75 Year
  Sex: Male

DRUGS (2)
  1. GLUCOPHAGE [Suspect]
     Indication: TYPE 2 DIABETES MELLITUS
     Dosage: 12 YRS AGO
     Route: 048
     Dates: end: 20110301
  2. PLAVIX [Concomitant]

REACTIONS (1)
  - LUNG DISORDER [None]
